FAERS Safety Report 17649516 (Version 3)
Quarter: 2021Q2

REPORT INFORMATION
  Report Type: Spontaneous
  Country: US (occurrence: US)
  Receive Date: 20200409
  Receipt Date: 20210517
  Transmission Date: 20210716
  Serious: No
  Sender: FDA-Public Use
  Company Number: US-MYLANLABS-2020M1033095

PATIENT
  Sex: Female

DRUGS (3)
  1. PERCOCET                           /00446701/ [Concomitant]
     Active Substance: ACETAMINOPHEN\OXYCODONE HYDROCHLORIDE\OXYCODONE TEREPHTHALATE
     Dosage: UNK
  2. FENTANYL TRANSDERMAL SYSTEM [Suspect]
     Active Substance: FENTANYL
     Indication: PAIN
     Dosage: UNSPECIFIED
     Route: 062
  3. FENTANYL TRANSDERMAL SYSTEM [Suspect]
     Active Substance: FENTANYL
     Dosage: ONE AT A TIME EVERY 3 DAYS
     Route: 062

REACTIONS (4)
  - Product adhesion issue [Unknown]
  - Therapeutic product effect incomplete [Not Recovered/Not Resolved]
  - Hyperhidrosis [Unknown]
  - Wrong technique in product usage process [Not Recovered/Not Resolved]
